FAERS Safety Report 12837261 (Version 1)
Quarter: 2016Q4

REPORT INFORMATION
  Report Type: Spontaneous
  Country: US (occurrence: US)
  Receive Date: 20161009
  Receipt Date: 20161009
  Transmission Date: 20170207
  Serious: Yes (Disabling, Other)
  Sender: FDA-Public Use
  Company Number: None

PATIENT
  Age: 21 Year
  Sex: Female
  Weight: 72 kg

DRUGS (4)
  1. GILDESS FE [Concomitant]
     Active Substance: ETHINYL ESTRADIOL\NORETHINDRONE
  2. TYLENOL [Concomitant]
     Active Substance: ACETAMINOPHEN
  3. CLONAZEPAM. [Concomitant]
     Active Substance: CLONAZEPAM
  4. HYOSCYAMINE. [Suspect]
     Active Substance: HYOSCYAMINE
     Indication: IRRITABLE BOWEL SYNDROME
     Dosage: ?          QUANTITY:30 TABLET(S);?
     Route: 060

REACTIONS (9)
  - Concussion [None]
  - Fall [None]
  - Anxiety [None]
  - Delirium [None]
  - Head injury [None]
  - Confusional state [None]
  - Loss of consciousness [None]
  - Disorientation [None]
  - Hallucination [None]

NARRATIVE: CASE EVENT DATE: 20160728
